FAERS Safety Report 17646832 (Version 1)
Quarter: 2020Q2

REPORT INFORMATION
  Report Type: Spontaneous
  Country: FR (occurrence: FR)
  Receive Date: 20200408
  Receipt Date: 20200408
  Transmission Date: 20200713
  Serious: Yes (Death)
  Sender: FDA-Public Use
  Company Number: FR-PFIZER INC-2020140927

PATIENT
  Age: 51 Year
  Sex: Male
  Weight: 80 kg

DRUGS (9)
  1. BLEOMYCIN [Suspect]
     Active Substance: BLEOMYCIN SULFATE
     Indication: TESTICULAR CANCER METASTATIC
     Dosage: 25 MG, 1X/DAY DEPENDING ON CYCLE
     Route: 041
     Dates: start: 20191028, end: 20200112
  2. CISPLATIN. [Suspect]
     Active Substance: CISPLATIN
     Indication: TESTICULAR CANCER METASTATIC
     Dosage: 41 MG, 1X/DAY
     Route: 041
     Dates: start: 20191028, end: 20200112
  3. ONDANSETRON HYDROCHLORIDE. [Suspect]
     Active Substance: ONDANSETRON HYDROCHLORIDE
     Indication: NAUSEA
     Dosage: 16 MG, 1X/DAY
     Route: 048
     Dates: start: 20200108, end: 20200112
  4. OLANZAPINE. [Suspect]
     Active Substance: OLANZAPINE
     Indication: NAUSEA
     Dosage: 5 MG, 1X/DAY
     Route: 048
     Dates: start: 20200108, end: 20200112
  5. OXALIPLATIN. [Suspect]
     Active Substance: OXALIPLATIN
     Indication: TESTICULAR CANCER METASTATIC
     Dosage: 130 MG/M2, CYCLIC EVERY 20 DAYS
     Route: 041
     Dates: start: 20191107, end: 20191127
  6. LERCANIDIPINE [LERCANIDIPINE HYDROCHLORIDE] [Suspect]
     Active Substance: LERCANIDIPINE HYDROCHLORIDE
     Indication: HYPERTENSION
     Dosage: 10 MG, 1X/DAY
     Route: 048
  7. NEBIVOLOL. [Suspect]
     Active Substance: NEBIVOLOL
     Indication: HYPERTENSION
     Dosage: 10 MG, 1X/DAY
     Route: 048
  8. PACLITAXEL. [Suspect]
     Active Substance: PACLITAXEL
     Indication: TESTICULAR CANCER METASTATIC
     Dosage: 175 MG/M2, EVERY 3 WEEKS
     Route: 041
     Dates: start: 20191028, end: 20191118
  9. IFOSFAMIDE. [Suspect]
     Active Substance: IFOSFAMIDE
     Indication: TESTICULAR CANCER METASTATIC
     Dosage: 4000 MG, 1X/DAY
     Route: 041
     Dates: start: 20191028, end: 20200112

REACTIONS (5)
  - Pyrexia [Not Recovered/Not Resolved]
  - Dyspnoea [Not Recovered/Not Resolved]
  - Product use in unapproved indication [Not Recovered/Not Resolved]
  - Acute respiratory distress syndrome [Fatal]
  - Off label use [Not Recovered/Not Resolved]

NARRATIVE: CASE EVENT DATE: 20200113
